FAERS Safety Report 19922899 (Version 13)
Quarter: 2022Q4

REPORT INFORMATION
  Report Type: Report from Study
  Country: US (occurrence: US)
  Receive Date: 20211005
  Receipt Date: 20221121
  Transmission Date: 20230112
  Serious: Yes (Other)
  Sender: FDA-Public Use
  Company Number: US-NOVARTISTESTPH-NVSC2021US227586

PATIENT
  Sex: Female

DRUGS (2)
  1. KESIMPTA [Suspect]
     Active Substance: OFATUMUMAB
     Indication: Multiple sclerosis
     Dosage: UNK
     Route: 065
     Dates: start: 202110
  2. KESIMPTA [Suspect]
     Active Substance: OFATUMUMAB
     Dosage: UNK
     Route: 065

REACTIONS (17)
  - Optic neuritis [Unknown]
  - Eye pain [Unknown]
  - Visual impairment [Unknown]
  - Temperature intolerance [Unknown]
  - Multiple allergies [Unknown]
  - Ligament sprain [Unknown]
  - Irritability [Unknown]
  - Stress [Unknown]
  - Myalgia [Recovered/Resolved]
  - Pain [Unknown]
  - Memory impairment [Unknown]
  - Sleep disorder [Unknown]
  - Balance disorder [Unknown]
  - Vomiting [Unknown]
  - Headache [Unknown]
  - Fatigue [Recovered/Resolved]
  - Fatigue [Not Recovered/Not Resolved]
